FAERS Safety Report 23202202 (Version 1)
Quarter: 2023Q4

REPORT INFORMATION
  Report Type: Spontaneous
  Country: US (occurrence: US)
  Receive Date: 20231120
  Receipt Date: 20231120
  Transmission Date: 20240110
  Serious: Yes (Other)
  Sender: FDA-Public Use
  Company Number: US-ENDO PHARMACEUTICALS INC-2023-004570

PATIENT
  Sex: Male

DRUGS (1)
  1. RANITIDINE HYDROCHLORIDE [Suspect]
     Active Substance: RANITIDINE HYDROCHLORIDE
     Indication: Product used for unknown indication
     Dosage: UNK UNKNOWN, UNKNOWN
     Route: 065
     Dates: start: 2000, end: 2017

REACTIONS (6)
  - Cardiomegaly [Unknown]
  - Hypertension [Unknown]
  - Arthritis [Unknown]
  - Prostatic disorder [Unknown]
  - Sleep apnoea syndrome [Unknown]
  - Bladder pain [Unknown]
